FAERS Safety Report 17893969 (Version 1)
Quarter: 2020Q2

REPORT INFORMATION
  Report Type: Spontaneous
  Country: DE (occurrence: DE)
  Receive Date: 20200615
  Receipt Date: 20200615
  Transmission Date: 20200714
  Serious: Yes (Hospitalization)
  Sender: FDA-Public Use
  Company Number: DE-TEVA-2020-DE-1247754

PATIENT
  Age: 79 Year
  Sex: Female

DRUGS (11)
  1. HCT [Suspect]
     Active Substance: HYDROCHLOROTHIAZIDE
     Dosage: 25 MILLIGRAM DAILY; 1-0-0-0
  2. RAMIPRIL. [Concomitant]
     Active Substance: RAMIPRIL
     Dosage: 5 MILLIGRAM DAILY; 1-0-1-0
  3. AMLODIPIN [Concomitant]
     Active Substance: AMLODIPINE BESYLATE
     Dosage: .5 DOSAGE FORMS DAILY; 5 MG, 0-0-0-0.5
  4. CINNARIZIN/DIMENHYDRINAT [Concomitant]
     Dosage: 20,40 MG, 1-1-1-0
  5. MIRTAZAPIN [Concomitant]
     Active Substance: MIRTAZAPINE
     Dosage: 15 MILLIGRAM DAILY; 0-0-0-1
  6. INTERFERON BETA-1A [Suspect]
     Active Substance: INTERFERON BETA-1A
     Dosage: 600,000.00 IU, OFFSET
  7. DABIGATRAN [Concomitant]
     Active Substance: DABIGATRAN
     Dosage: 220 MILLIGRAM DAILY; 1-0-1-0
  8. METOPROLOL. [Concomitant]
     Active Substance: METOPROLOL
     Dosage: 95 MILLIGRAM DAILY; 1-0-0-0, RETARD TABLETS
  9. INDIVINA 1MG/2,5MG [Concomitant]
     Dosage: 1,2.5 MG, 1-0-0-0
  10. ATORVASTATIN [Concomitant]
     Active Substance: ATORVASTATIN
     Dosage: 80 MILLIGRAM DAILY; 0-0-1-0
  11. DIGITOXIN [Concomitant]
     Active Substance: DIGITOXIN
     Dosage: .07 MILLIGRAM DAILY; 1-0-0-0

REACTIONS (3)
  - Dysarthria [Unknown]
  - Gait disturbance [Unknown]
  - Product monitoring error [Unknown]

NARRATIVE: CASE EVENT DATE: 20191104
